FAERS Safety Report 17784889 (Version 1)
Quarter: 2020Q2

REPORT INFORMATION
  Report Type: Spontaneous
  Country: PL (occurrence: PL)
  Receive Date: 20200513
  Receipt Date: 20200513
  Transmission Date: 20200714
  Serious: Yes (Death, Hospitalization, Other)
  Sender: FDA-Public Use
  Company Number: NVSC2020PL129751

PATIENT
  Sex: Female
  Weight: 70 kg

DRUGS (12)
  1. DIPROPHYLLINE [Concomitant]
     Active Substance: DYPHYLLINE
     Indication: PRODUCT USED FOR UNKNOWN INDICATION
     Dosage: 600 MG
     Route: 048
     Dates: start: 20190326
  2. CARBOPLATIN. [Suspect]
     Active Substance: CARBOPLATIN
     Indication: NON-SMALL CELL LUNG CANCER
     Dosage: SECOND LINE CHEMOTHERAPY
     Route: 065
     Dates: start: 20190508, end: 20190529
  3. DORETA [Concomitant]
     Active Substance: ACETAMINOPHEN\TRAMADOL HYDROCHLORIDE
     Indication: PRODUCT USED FOR UNKNOWN INDICATION
     Dosage: 150 MG
     Route: 048
     Dates: start: 20171101
  4. CACHEXAN [Concomitant]
     Indication: PRODUCT USED FOR UNKNOWN INDICATION
     Dosage: 600 MG
     Route: 048
     Dates: start: 20181115
  5. LOPERAMID [Concomitant]
     Active Substance: LOPERAMIDE
     Indication: PRODUCT USED FOR UNKNOWN INDICATION
     Dosage: 4 MG
     Route: 048
     Dates: start: 20180921
  6. VINORELBINE [Suspect]
     Active Substance: VINORELBINE TARTRATE
     Indication: NON-SMALL CELL LUNG CANCER
     Dosage: SECOND LINE CHEMOTHERAPY
     Route: 065
     Dates: start: 20190508, end: 20190529
  7. RELTEBON [Concomitant]
     Active Substance: OXYCODONE HYDROCHLORIDE
     Indication: PRODUCT USED FOR UNKNOWN INDICATION
     Dosage: 40 MG
     Route: 048
     Dates: start: 20190425
  8. ASPARGIN [Concomitant]
     Active Substance: ASPARTIC ACID
     Indication: PRODUCT USED FOR UNKNOWN INDICATION
     Dosage: 500 MG
     Route: 048
     Dates: start: 20181005
  9. KALIPOZ [Concomitant]
     Active Substance: POTASSIUM CHLORIDE
     Indication: PRODUCT USED FOR UNKNOWN INDICATION
     Dosage: 0.75 G
     Route: 048
     Dates: start: 20190529
  10. PRENESSA [Concomitant]
     Active Substance: PERINDOPRIL
     Indication: PRODUCT USED FOR UNKNOWN INDICATION
     Dosage: 4 MG
     Route: 048
     Dates: start: 2013
  11. BIBLOC [Concomitant]
     Active Substance: BISOPROLOL
     Indication: PRODUCT USED FOR UNKNOWN INDICATION
     Dosage: 2.5 MG
     Route: 048
     Dates: start: 2013
  12. EUTHYROX [Concomitant]
     Active Substance: LEVOTHYROXINE SODIUM
     Indication: PRODUCT USED FOR UNKNOWN INDICATION
     Dosage: 100 UG
     Route: 048
     Dates: start: 20190325

REACTIONS (2)
  - Malignant neoplasm progression [Fatal]
  - Anaemia [Recovered/Resolved]

NARRATIVE: CASE EVENT DATE: 20190612
